FAERS Safety Report 7245520-X (Version None)
Quarter: 2011Q1

REPORT INFORMATION
  Report Type: 
  Country: None (occurrence: None)
  Receive Date: 20110126
  Receipt Date: 20110113
  Transmission Date: 20110831
  Serious: Yes (Other)
  Sender: FDA-Public Use
  Company Number: JP-CELGENEUS-087-21880-10101334

PATIENT
  Sex: Female
  Weight: 43.3 kg

DRUGS (23)
  1. REVLIMID [Suspect]
     Indication: MULTIPLE MYELOMA
     Route: 048
     Dates: start: 20100906, end: 20100924
  2. LENADEX [Suspect]
     Route: 048
     Dates: start: 20101008, end: 20101008
  3. REVLIMID [Suspect]
     Route: 048
     Dates: start: 20101005, end: 20101015
  4. LENADEX [Suspect]
     Indication: MULTIPLE MYELOMA
     Route: 048
     Dates: start: 20100906, end: 20100907
  5. LIVOSTIN [Concomitant]
     Route: 055
     Dates: start: 20100903
  6. FORSENID [Concomitant]
     Route: 048
     Dates: start: 20100910
  7. MUCOSTA [Concomitant]
     Route: 048
     Dates: start: 20100903
  8. MAGMITT [Concomitant]
     Route: 048
  9. LENADEX [Suspect]
     Route: 048
     Dates: start: 20100909, end: 20100909
  10. LENADEX [Suspect]
     Route: 048
     Dates: start: 20101005, end: 20101006
  11. BISPHOSPHONATES [Concomitant]
     Route: 065
     Dates: end: 20100901
  12. EPADEL [Concomitant]
     Dosage: 600MG, 1 PACK
     Route: 048
     Dates: start: 20100910
  13. LENADEX [Suspect]
     Route: 048
     Dates: start: 20101007, end: 20101007
  14. BACTRIM [Concomitant]
     Indication: PROPHYLAXIS
     Route: 048
     Dates: start: 20100906
  15. LENADEX [Suspect]
     Route: 048
     Dates: start: 20100908, end: 20100908
  16. INTENURSE PAP [Concomitant]
     Indication: MULTIPLE MYELOMA
     Dosage: 2 PATCHES
     Route: 065
     Dates: start: 20100903
  17. ROHYPNOL [Concomitant]
     Route: 048
  18. NAUZELIN [Concomitant]
     Route: 048
  19. LENADEX [Suspect]
     Route: 048
     Dates: start: 20101009, end: 20101009
  20. TRINOSIN [Concomitant]
     Dosage: 3 PACKS
     Route: 048
     Dates: start: 20100903, end: 20100909
  21. NABOAL GEL [Concomitant]
     Indication: MULTIPLE MYELOMA
     Dosage: 1 TUBE
     Route: 065
     Dates: start: 20100906
  22. LENADEX [Suspect]
     Route: 048
     Dates: start: 20100910, end: 20100910
  23. MARZULENE [Concomitant]
     Dosage: 3 PACKS
     Route: 048
     Dates: start: 20100910

REACTIONS (3)
  - GINGIVITIS [None]
  - RASH [None]
  - OSTEONECROSIS OF JAW [None]
